FAERS Safety Report 7119893-2 (Version None)
Quarter: 2010Q4

REPORT INFORMATION
  Report Type: 
  Country: None (occurrence: None)
  Receive Date: 20101123
  Receipt Date: 20101001
  Transmission Date: 20110411
  Serious: No
  Sender: FDA-Public Use
  Company Number: US-BRISTOL-MYERS SQUIBB COMPANY-15314529

PATIENT
  Age: 91 Year
  Sex: Female
  Weight: 63 kg

DRUGS (2)
  1. ONGLYZA [Suspect]
  2. SYNTHROID [Concomitant]
     Dosage: WOULD HAVE TO GO LOOK UP THE OTHERS (4 IN THE MORNING AND 3 AT NIGHT)

REACTIONS (1)
  - BLOOD GLUCOSE INCREASED [None]
